FAERS Safety Report 7359292-1 (Version None)
Quarter: 2011Q1

REPORT INFORMATION
  Report Type: 
  Country: None (occurrence: None)
  Receive Date: 20110317
  Receipt Date: 20090923
  Transmission Date: 20110831
  Serious: No
  Sender: FDA-Public Use
  Company Number: US-PFIZER INC-2009252790

PATIENT
  Sex: Female
  Weight: 65.306 kg

DRUGS (10)
  1. NORVASC [Suspect]
     Indication: CHEST DISCOMFORT
     Dosage: 5 MG, 1X/DAY
     Route: 048
     Dates: start: 20090805
  2. ASPIRIN [Concomitant]
     Dosage: UNK
  3. ZOCOR [Concomitant]
     Dosage: UNK
  4. LISINOPRIL [Concomitant]
     Dosage: UNK
  5. POTASSIUM [Concomitant]
     Dosage: UNK
  6. SOMA [Concomitant]
     Dosage: UNK
  7. CLONAZEPAM [Concomitant]
     Dosage: UNK
  8. METOPROLOL [Concomitant]
     Dosage: UNK
  9. WELLBUTRIN [Concomitant]
     Dosage: UNK
  10. PERCOCET [Concomitant]
     Dosage: UNK

REACTIONS (1)
  - BLOOD PRESSURE INADEQUATELY CONTROLLED [None]
